FAERS Safety Report 22126784 (Version 3)
Quarter: 2023Q2

REPORT INFORMATION
  Report Type: Spontaneous
  Country: US (occurrence: US)
  Receive Date: 20230322
  Receipt Date: 20230425
  Transmission Date: 20230722
  Serious: Yes (Other)
  Sender: FDA-Public Use
  Company Number: US-BAYER-2023A037564

PATIENT
  Age: 24 Year
  Sex: Female

DRUGS (2)
  1. MIRENA [Suspect]
     Active Substance: LEVONORGESTREL
     Indication: Contraception
     Dosage: 20?G/DAY
     Route: 015
     Dates: start: 20230228, end: 20230321
  2. MIRENA [Suspect]
     Active Substance: LEVONORGESTREL
     Indication: Abnormal uterine bleeding

REACTIONS (3)
  - Post procedural haemorrhage [None]
  - Device expulsion [Recovered/Resolved]
  - Procedural pain [None]

NARRATIVE: CASE EVENT DATE: 20230228
